FAERS Safety Report 7392029-9 (Version None)
Quarter: 2011Q2

REPORT INFORMATION
  Report Type: 
  Country: None (occurrence: None)
  Receive Date: 20110404
  Receipt Date: 20110328
  Transmission Date: 20111010
  Serious: Yes (Other)
  Sender: FDA-Public Use
  Company Number: B0710503A

PATIENT
  Age: 60 Year
  Sex: Male

DRUGS (1)
  1. NIQUITIN MINI LOZENGES 1.5MG [Suspect]
     Indication: PRODUCT USED FOR UNKNOWN INDICATION
     Route: 065

REACTIONS (1)
  - AGGRESSION [None]
